FAERS Safety Report 12411749 (Version 1)
Quarter: 2016Q2

REPORT INFORMATION
  Report Type: Spontaneous
  Country: US (occurrence: US)
  Receive Date: 20160527
  Receipt Date: 20160527
  Transmission Date: 20160815
  Serious: Yes (Other)
  Sender: FDA-Public Use
  Company Number: PHHY2015US126355

PATIENT
  Age: 65 Year
  Sex: Female

DRUGS (1)
  1. TOPOTECAN [Suspect]
     Active Substance: TOPOTECAN\TOPOTECAN HYDROCHLORIDE
     Indication: PRODUCT USED FOR UNKNOWN INDICATION
     Dosage: 0.4 MG, BIW
     Route: 016

REACTIONS (7)
  - Cerebral cyst [Recovered/Resolved]
  - Aphasia [Recovered/Resolved]
  - Hemiparesis [Recovered/Resolved]
  - Headache [Recovered/Resolved]
  - Seizure [Recovered/Resolved]
  - Encephalitis [Recovered/Resolved]
  - Confusional state [Recovered/Resolved]
